FAERS Safety Report 7875523-3 (Version None)
Quarter: 2011Q4

REPORT INFORMATION
  Report Type: 
  Country: None (occurrence: None)
  Receive Date: 20111031
  Receipt Date: 20111027
  Transmission Date: 20120403
  Serious: Yes (Death)
  Sender: FDA-Public Use
  Company Number: PHEH2011US07993

PATIENT
  Sex: Male

DRUGS (2)
  1. EXJADE [Suspect]
     Indication: LYMPHOPROLIFERATIVE DISORDER
  2. EXJADE [Suspect]
     Indication: IRON METABOLISM DISORDER
     Dosage: 1500 MG, QD
     Route: 048

REACTIONS (1)
  - DEATH [None]
